FAERS Safety Report 5614064-0 (Version None)
Quarter: 2008Q1

REPORT INFORMATION
  Report Type: 
  Country: None (occurrence: None)
  Receive Date: 20080130
  Receipt Date: 20080118
  Transmission Date: 20080703
  Serious: Yes (Hospitalization)
  Sender: FDA-Public Use
  Company Number: 200801002

PATIENT
  Age: 30 Year
  Sex: Male

DRUGS (1)
  1. SUSTANON (SUSTANON /00593501/) [Suspect]
     Indication: KLINEFELTER'S SYNDROME
     Dosage: 250 VIAL, INJECTION

REACTIONS (2)
  - ARTERIAL THROMBOSIS LIMB [None]
  - PAIN IN EXTREMITY [None]
